FAERS Safety Report 14064066 (Version 3)
Quarter: 2018Q2

REPORT INFORMATION
  Report Type: Report from Study
  Country: None (occurrence: US)
  Receive Date: 20171009
  Receipt Date: 20180604
  Transmission Date: 20180711
  Serious: Yes (Other)
  Sender: FDA-Public Use
  Company Number: US-ABBVIE-17K-163-2119560-00

PATIENT
  Age: 29 Year
  Sex: Male
  Weight: 99.88 kg

DRUGS (1)
  1. HUMIRA [Suspect]
     Active Substance: ADALIMUMAB
     Indication: ANKYLOSING SPONDYLITIS
     Route: 058
     Dates: start: 201604

REACTIONS (7)
  - Foot operation [Unknown]
  - Vascular compression [Unknown]
  - Arthralgia [Not Recovered/Not Resolved]
  - Ankylosing spondylitis [Unknown]
  - Cyst [Recovered/Resolved]
  - Arthralgia [Unknown]
  - Pain in extremity [Unknown]

NARRATIVE: CASE EVENT DATE: 2017
